FAERS Safety Report 8239047-6 (Version None)
Quarter: 2012Q1

REPORT INFORMATION
  Report Type: 
  Country: None (occurrence: None)
  Receive Date: 20120327
  Receipt Date: 20120322
  Transmission Date: 20120608
  Serious: Yes (Other)
  Sender: FDA-Public Use
  Company Number: US-MERCK-1203USA02940

PATIENT
  Age: 78 Year
  Sex: Female

DRUGS (4)
  1. ARMOUR THYROID TABLETS [Concomitant]
     Route: 048
  2. ESTROGENS (UNSPECIFIED) [Concomitant]
     Route: 065
  3. VYTORIN [Suspect]
     Indication: BLOOD CHOLESTEROL INCREASED
     Route: 048
  4. METFORMIN [Concomitant]
     Route: 065

REACTIONS (3)
  - PROTEIN URINE PRESENT [None]
  - RENAL FAILURE CHRONIC [None]
  - MYALGIA [None]
